FAERS Safety Report 5464074-1 (Version None)
Quarter: 2007Q3

REPORT INFORMATION
  Report Type: 
  Country: None (occurrence: None)
  Receive Date: 20070921
  Receipt Date: 20070918
  Transmission Date: 20080115
  Serious: Yes (Hospitalization)
  Sender: FDA-Public Use
  Company Number: US-ALLERGAN-0710208US

PATIENT
  Sex: Female

DRUGS (6)
  1. BOTOX [Suspect]
     Indication: MIGRAINE
     Dosage: UNK, SINGLE
     Route: 030
     Dates: start: 20060901, end: 20060901
  2. LAMICTAL [Concomitant]
  3. TOPAMAX [Concomitant]
  4. PEPCID [Concomitant]
  5. INDOMETHACIN [Concomitant]
  6. PREDNISONE [Concomitant]

REACTIONS (1)
  - CONVULSION [None]
